FAERS Safety Report 8008589-0 (Version None)
Quarter: 2011Q4

REPORT INFORMATION
  Report Type: 
  Country: None (occurrence: None)
  Receive Date: 20111227
  Receipt Date: 20111220
  Transmission Date: 20120403
  Serious: Yes (Death, Disabling)
  Sender: FDA-Public Use
  Company Number: US-CELGENEUS-163-21880-11090735

PATIENT
  Sex: Female
  Weight: 54.48 kg

DRUGS (4)
  1. REVLIMID [Suspect]
     Dosage: 10 MILLIGRAM
     Route: 048
     Dates: start: 20110831, end: 20110905
  2. METOPROLOL SUCCINATE [Concomitant]
     Route: 065
  3. VANCOMYCIN HYCHLORIDE [Suspect]
     Indication: ENDOCARDITIS
     Dosage: 1 GRAM
     Route: 041
     Dates: start: 20110815, end: 20111005
  4. REVLIMID [Suspect]
     Dosage: 10 MILLIGRAM
     Route: 048
     Dates: start: 20110809, end: 20110801

REACTIONS (3)
  - RASH [None]
  - TREATMENT NONCOMPLIANCE [None]
  - MYELODYSPLASTIC SYNDROME [None]
